FAERS Safety Report 4745981-1 (Version None)
Quarter: 2005Q3

REPORT INFORMATION
  Report Type: 
  Country: None (occurrence: None)
  Receive Date: 20050816
  Receipt Date: 20050708
  Transmission Date: 20060218
  Serious: Yes (Hospitalization)
  Sender: FDA-Public Use
  Company Number: US-MERCK-0507USA01181

PATIENT
  Age: 60 Year
  Sex: Male
  Weight: 107 kg

DRUGS (6)
  1. VIOXX [Suspect]
     Indication: SPONDYLITIS
     Route: 048
     Dates: start: 19990101, end: 20040901
  2. ASPIRIN [Concomitant]
     Route: 065
  3. NIASPAN [Concomitant]
     Route: 065
  4. ZOCOR [Concomitant]
     Route: 048
  5. QUINAPRIL HYDROCHLORIDE [Concomitant]
     Route: 065
  6. PROPOXYPHENE HYDROCHLORIDE [Concomitant]
     Route: 065

REACTIONS (2)
  - CORONARY ARTERY OCCLUSION [None]
  - MYOCARDIAL INFARCTION [None]
